FAERS Safety Report 5653510-3 (Version None)
Quarter: 2008Q1

REPORT INFORMATION
  Report Type: 
  Country: None (occurrence: None)
  Receive Date: 20080131
  Receipt Date: 20071009
  Transmission Date: 20080703
  Serious: No
  Sender: FDA-Public Use
  Company Number: US200710002619

PATIENT
  Age: 44 Year
  Sex: Female

DRUGS (1)
  1. BYETTA [Suspect]
     Indication: TYPE 2 DIABETES MELLITUS
     Dosage: 5 UG, 2/D, SUBCUTANEOUS
     Route: 058
     Dates: start: 20071007

REACTIONS (5)
  - ABDOMINAL DISTENSION [None]
  - ERUCTATION [None]
  - FATIGUE [None]
  - INJECTION SITE RASH [None]
  - NAUSEA [None]
